FAERS Safety Report 5395728-3 (Version None)
Quarter: 2007Q3

REPORT INFORMATION
  Report Type: 
  Country: None (occurrence: None)
  Receive Date: 20070724
  Receipt Date: 20070717
  Transmission Date: 20080115
  Serious: Yes (Other)
  Sender: FDA-Public Use
  Company Number: US-MERCK-0706USA04287

PATIENT
  Age: 41 Year
  Sex: Female
  Weight: 85 kg

DRUGS (8)
  1. VYTORIN [Suspect]
     Indication: BLOOD CHOLESTEROL
     Route: 048
     Dates: start: 20070425
  2. VYTORIN [Suspect]
     Route: 048
     Dates: end: 20070621
  3. VYTORIN [Suspect]
     Indication: BLOOD TRIGLYCERIDES INCREASED
     Route: 048
     Dates: start: 20070425
  4. VYTORIN [Suspect]
     Route: 048
     Dates: end: 20070621
  5. XANAX [Concomitant]
     Indication: ANXIETY
     Route: 048
     Dates: start: 20020501
  6. BACLOFEN [Concomitant]
     Indication: MUSCLE SPASMS
     Route: 048
     Dates: start: 20070126
  7. PREMARIN [Concomitant]
     Indication: ARTIFICIAL MENOPAUSE
     Route: 048
     Dates: start: 20060901
  8. CYMBALTA [Concomitant]
     Indication: DEPRESSION
     Route: 048
     Dates: start: 20070126

REACTIONS (9)
  - ABDOMINAL PAIN [None]
  - DERMATITIS [None]
  - DIARRHOEA [None]
  - DYSPNOEA [None]
  - FAECES DISCOLOURED [None]
  - FUNGAL INFECTION [None]
  - INAPPROPRIATE SCHEDULE OF DRUG ADMINISTRATION [None]
  - PRURITUS [None]
  - URTICARIA [None]
